FAERS Safety Report 9969675 (Version 1)
Quarter: 2014Q1

REPORT INFORMATION
  Report Type: Spontaneous
  Country: US (occurrence: None)
  Receive Date: 20140304
  Receipt Date: 20140304
  Transmission Date: 20141002
  Serious: Yes (Hospitalization)
  Sender: FDA-Public Use
  Company Number: UTC-044633

PATIENT
  Age: 48 Year
  Sex: Female

DRUGS (12)
  1. TYVASO (6 MICROGRAM, AEROSOL FOR INHALATION)(TREPROSTINIL SODIUM) [Suspect]
     Indication: PULMONARY ARTERIAL HYPERTENSION
     Dosage: 54 UG 4 IN 1 D
     Dates: start: 20110525
  2. REVATIO (SILDENAFIL CITRATE) [Concomitant]
  3. CYMBALTA [Concomitant]
  4. MEHTYLPREDNISOLONE [Concomitant]
  5. LISINOPRIL [Concomitant]
  6. XANAX (ALPRAZOLAM) [Concomitant]
  7. CELEXA (CITALOPRAM HYDROBROMIDE) [Concomitant]
  8. FUROSEMIDE [Concomitant]
  9. PEPCID (FAMOTIDINE) [Concomitant]
  10. REGLAN (METOCLOPRAMIDE) [Concomitant]
  11. COREG (CARVEDILOL) [Concomitant]
  12. LEVOTHYROXINE [Concomitant]

REACTIONS (5)
  - Cardiac failure congestive [None]
  - Pulmonary hypertension [None]
  - Therapy cessation [None]
  - Fluid retention [None]
  - Weight increased [None]
